FAERS Safety Report 19375476 (Version 1)
Quarter: 2021Q2

REPORT INFORMATION
  Report Type: Report from Study
  Country: US (occurrence: US)
  Receive Date: 20210604
  Receipt Date: 20210604
  Transmission Date: 20210717
  Serious: Yes (Life-Threatening)
  Sender: FDA-Public Use
  Company Number: US-BAYER-2021-149366

PATIENT
  Age: 72 Year
  Sex: Female

DRUGS (2)
  1. ASPIRIN. [Suspect]
     Active Substance: ASPIRIN
     Indication: HEADACHE
  2. ASPIRIN. [Suspect]
     Active Substance: ASPIRIN
     Indication: OSTEOARTHRITIS

REACTIONS (7)
  - Tachycardia [Recovering/Resolving]
  - Anion gap abnormal [None]
  - Mental status changes [Recovering/Resolving]
  - Toxicity to various agents [Recovering/Resolving]
  - Respiratory alkalosis [Recovering/Resolving]
  - Metabolic acidosis [Recovering/Resolving]
  - Hyperchloraemia [None]
